FAERS Safety Report 6674718-4 (Version None)
Quarter: 2010Q2

REPORT INFORMATION
  Report Type: 
  Country: None (occurrence: None)
  Receive Date: 20100409
  Receipt Date: 20100326
  Transmission Date: 20101027
  Serious: Yes (Death)
  Sender: FDA-Public Use
  Company Number: FR-PFIZER INC-2009199173

PATIENT
  Age: 80 Year
  Sex: Male
  Weight: 59 kg

DRUGS (9)
  1. CAMPTOSAR [Suspect]
     Indication: COLORECTAL CANCER STAGE IV
     Dosage: CYCLIC
     Route: 042
     Dates: start: 20090107, end: 20090318
  2. FLUOROURACIL [Suspect]
     Indication: COLORECTAL CANCER STAGE IV
     Dosage: CYCLIC
     Route: 042
     Dates: start: 20090107, end: 20090318
  3. SINTROM [Concomitant]
  4. AMAREL [Concomitant]
  5. ALFUZOSIN HCL [Concomitant]
  6. COLCHICINE [Concomitant]
  7. DIGOXIN [Concomitant]
  8. LASIX [Concomitant]
  9. ZESTRIL [Concomitant]

REACTIONS (8)
  - ASTHENIA [None]
  - BRONCHIAL OBSTRUCTION [None]
  - DIARRHOEA [None]
  - MUCOSAL INFLAMMATION [None]
  - MULTI-ORGAN FAILURE [None]
  - NEUTROPENIA [None]
  - STOMATITIS [None]
  - VOMITING [None]
